FAERS Safety Report 9123234 (Version 1)
Quarter: 2013Q1

REPORT INFORMATION
  Report Type: Spontaneous
  Country: US (occurrence: None)
  Receive Date: 20130226
  Receipt Date: 20130226
  Transmission Date: 20140127
  Serious: Yes (Other)
  Sender: FDA-Public Use
  Company Number: None

PATIENT
  Age: 67 Year
  Sex: Female
  Weight: 99.79 kg

DRUGS (1)
  1. ENOXAPARIN SODIUM [Suspect]
     Indication: THROMBOSIS PROPHYLAXIS
     Dosage: 2 DOSES DAY, SQ
     Route: 058
     Dates: start: 20130115, end: 20130118

REACTIONS (5)
  - Product substitution issue [None]
  - Burning sensation [None]
  - Pain [None]
  - Rash [None]
  - Swelling [None]
